FAERS Safety Report 16516047 (Version 1)
Quarter: 2019Q3

REPORT INFORMATION
  Report Type: Spontaneous
  Country: FR (occurrence: FR)
  Receive Date: 20190702
  Receipt Date: 20190702
  Transmission Date: 20191004
  Serious: Yes (Death)
  Sender: FDA-Public Use
  Company Number: FR-MYLANLABS-2019M1060552

PATIENT
  Age: 73 Year
  Sex: Female

DRUGS (7)
  1. SODIUM ALGINATE,SODIUM BICARBONATE [Suspect]
     Active Substance: SODIUM ALGINATE\SODIUM BICARBONATE
     Indication: PRODUCT USED FOR UNKNOWN INDICATION
     Dosage: 3 DOSAGE FORM, QD
     Route: 048
     Dates: start: 20181004, end: 20181012
  2. ORBENINE [Suspect]
     Active Substance: CLOXACILLIN SODIUM
     Indication: PULMONARY FIBROSIS
     Dosage: 12 GRAM, QD
     Route: 042
     Dates: start: 20181010, end: 20181011
  3. GALVUS [Suspect]
     Active Substance: VILDAGLIPTIN
     Indication: TYPE 2 DIABETES MELLITUS
     Dosage: 100 MILLIGRAM, QD
     Route: 048
     Dates: start: 20181004, end: 20181011
  4. DOLIPRANE [Suspect]
     Active Substance: ACETAMINOPHEN
     Indication: PRODUCT USED FOR UNKNOWN INDICATION
     Dosage: 1 G EN UNE PRISE
     Route: 048
     Dates: start: 20181010, end: 20181010
  5. MORPHINE CHLORHYDRATE AGUETTANT [Suspect]
     Active Substance: MORPHINE HYDROCHLORIDE
     Indication: PRODUCT USED FOR UNKNOWN INDICATION
     Dosage: UNK
     Route: 042
     Dates: start: 20181009, end: 20181012
  6. PIPERACILLIN,TAZOBACTAM MYLAN [Suspect]
     Active Substance: PIPERACILLIN SODIUM\TAZOBACTAM SODIUM
     Indication: PULMONARY FIBROSIS
     Dosage: 12 GRAM, QD
     Route: 042
     Dates: start: 20181009, end: 20181010
  7. LINEZOLIDE ARROW [Suspect]
     Active Substance: LINEZOLID
     Indication: PULMONARY FIBROSIS
     Dosage: 1200 MILLIGRAM, QD
     Route: 048
     Dates: start: 20181009, end: 20181010

REACTIONS (1)
  - Hepatitis fulminant [Fatal]

NARRATIVE: CASE EVENT DATE: 20181011
